FAERS Safety Report 9932113 (Version 1)
Quarter: 2014Q1

REPORT INFORMATION
  Report Type: Spontaneous
  Country: US (occurrence: US)
  Receive Date: 20140228
  Receipt Date: 20140228
  Transmission Date: 20141002
  Serious: No
  Sender: FDA-Public Use
  Company Number: US-ABBVIE-13P-163-1131859-00

PATIENT
  Sex: Male
  Weight: 108.05 kg

DRUGS (7)
  1. ANDROGEL [Suspect]
     Indication: BLOOD TESTOSTERONE DECREASED
     Route: 061
     Dates: start: 2010, end: 2012
  2. ANDROGEL [Suspect]
     Route: 061
     Dates: start: 2012
  3. CYMBALTA [Suspect]
     Indication: DEPRESSION
  4. CYMBALTA [Suspect]
     Indication: ANXIETY
  5. CYMBALTA [Suspect]
     Indication: OBSESSIVE-COMPULSIVE DISORDER
  6. LIPITOR [Concomitant]
     Indication: BLOOD CHOLESTEROL INCREASED
  7. PRISTIQ [Concomitant]
     Indication: DEPRESSION

REACTIONS (10)
  - Drug ineffective [Recovered/Resolved]
  - Blood testosterone abnormal [Not Recovered/Not Resolved]
  - Sexual dysfunction [Recovered/Resolved]
  - Erectile dysfunction [Recovered/Resolved]
  - Ejaculation disorder [Recovered/Resolved]
  - Libido decreased [Recovered/Resolved]
  - Libido increased [Not Recovered/Not Resolved]
  - Blood testosterone increased [Unknown]
  - Blood testosterone decreased [Unknown]
  - Somnolence [Recovered/Resolved]
